FAERS Safety Report 6344042-8 (Version None)
Quarter: 2009Q3

REPORT INFORMATION
  Report Type: 
  Country: None (occurrence: None)
  Receive Date: 20090908
  Receipt Date: 20090826
  Transmission Date: 20100115
  Serious: Yes (Other)
  Sender: FDA-Public Use
  Company Number: JP-PFIZER INC-2009263395

PATIENT

DRUGS (1)
  1. DETRUSITOL [Suspect]
     Route: 048

REACTIONS (2)
  - DELIRIUM [None]
  - PYREXIA [None]
